FAERS Safety Report 7949769-X (Version None)
Quarter: 2011Q4

REPORT INFORMATION
  Report Type: 
  Country: None (occurrence: None)
  Receive Date: 20111130
  Receipt Date: 20111123
  Transmission Date: 20120403
  Serious: Yes (Death, Other)
  Sender: FDA-Public Use
  Company Number: PHEH2011US009041

PATIENT
  Sex: Male

DRUGS (1)
  1. EXJADE [Suspect]
     Indication: ACUTE MYELOID LEUKAEMIA
     Dosage: 2000 MG,DAILY
     Route: 048
     Dates: start: 20110520

REACTIONS (11)
  - DIABETES MELLITUS [None]
  - DEVICE RELATED INFECTION [None]
  - DYSPLASIA [None]
  - PANCYTOPENIA [None]
  - CARDIAC FAILURE CONGESTIVE [None]
  - BACTERAEMIA [None]
  - HYPERTENSION [None]
  - ACUTE MYELOID LEUKAEMIA [None]
  - IRON OVERLOAD [None]
  - NEUTROPENIC SEPSIS [None]
  - CORONARY ARTERY DISEASE [None]
